FAERS Safety Report 9105137 (Version 2)
Quarter: 2013Q1

REPORT INFORMATION
  Report Type: Spontaneous
  Country: CA (occurrence: CA)
  Receive Date: 20130221
  Receipt Date: 20130311
  Transmission Date: 20140127
  Serious: Yes (Hospitalization)
  Sender: FDA-Public Use
  Company Number: PHHY2012CA117059

PATIENT
  Age: 49 Year
  Sex: Male

DRUGS (7)
  1. GLEEVEC [Suspect]
     Indication: GASTROINTESTINAL STROMAL TUMOUR
     Dosage: 400 MG, QD
     Route: 048
     Dates: start: 20121129, end: 20121210
  2. GLEEVEC [Suspect]
     Dosage: 400 MG, QD
     Route: 048
     Dates: start: 20130125, end: 20130204
  3. LASIX [Concomitant]
  4. ATENOLOL [Concomitant]
  5. NORVASC [Concomitant]
  6. CIPRALEX [Concomitant]
  7. XANAX [Concomitant]

REACTIONS (16)
  - Lip swelling [Unknown]
  - Pharyngeal oedema [Unknown]
  - Swollen tongue [Unknown]
  - Oedema mouth [Unknown]
  - Oral discomfort [Unknown]
  - Eating disorder [Unknown]
  - Ageusia [Unknown]
  - Oral mucosal exfoliation [Unknown]
  - Lip exfoliation [Unknown]
  - Rash pruritic [Unknown]
  - Hypersensitivity [Unknown]
  - Abdominal pain [Unknown]
  - Weight increased [Recovering/Resolving]
  - Fatigue [Unknown]
  - Headache [Unknown]
  - Somnolence [Unknown]
